FAERS Safety Report 8957299 (Version 3)
Quarter: 2013Q2

REPORT INFORMATION
  Report Type: Report from Study
  Country: RU (occurrence: RU)
  Receive Date: 20121210
  Receipt Date: 20130610
  Transmission Date: 20140414
  Serious: Yes (Other)
  Sender: FDA-Public Use
  Company Number: RU-ROCHE-1165324

PATIENT
  Sex: 0

DRUGS (5)
  1. CAPECITABINE [Suspect]
     Indication: RECTAL CANCER
     Route: 048
  2. OXALIPLATIN [Suspect]
     Indication: RECTAL CANCER
     Route: 042
  3. METRONIDAZOLE [Suspect]
     Indication: RECTAL CANCER
     Route: 054
  4. ONDANSETRON [Concomitant]
     Indication: PREMEDICATION
     Route: 042
  5. DEXAMETHASONE [Concomitant]
     Indication: PREMEDICATION
     Route: 030

REACTIONS (5)
  - Diarrhoea [Unknown]
  - Vomiting [Unknown]
  - Cystitis [Unknown]
  - Proctitis [Unknown]
  - Leukopenia [Unknown]
